FAERS Safety Report 4485530-9 (Version None)
Quarter: 2004Q4

REPORT INFORMATION
  Report Type: 
  Country: None (occurrence: None)
  Receive Date: 20041021
  Receipt Date: 20041001
  Transmission Date: 20050328
  Serious: Yes (Other)
  Sender: FDA-Public Use
  Company Number: 7291

PATIENT
  Age: 50 Year
  Sex: Female

DRUGS (1)
  1. SEPTOCAINE [Suspect]
     Indication: ANAESTHESIA
     Dosage: 1 CARPULE INJECTED
     Dates: start: 20040820

REACTIONS (2)
  - DRY MOUTH [None]
  - HYPOAESTHESIA ORAL [None]
